FAERS Safety Report 7078025-X (Version None)
Quarter: 2010Q4

REPORT INFORMATION
  Report Type: 
  Country: None (occurrence: None)
  Receive Date: 20101102
  Receipt Date: 20101027
  Transmission Date: 20110411
  Serious: Yes (Hospitalization)
  Sender: FDA-Public Use
  Company Number: US-BIOGENIDEC-2010BI034648

PATIENT
  Age: 41 Year
  Sex: Female
  Weight: 81 kg

DRUGS (3)
  1. TYSABRI [Suspect]
     Indication: MULTIPLE SCLEROSIS
     Route: 042
     Dates: start: 20090326
  2. PROVIGIL [Concomitant]
     Route: 048
     Dates: start: 20080101
  3. VITAMIN D3 [Concomitant]
     Route: 048
     Dates: start: 20100716

REACTIONS (1)
  - CHOLECYSTITIS ACUTE [None]
